FAERS Safety Report 8390162 (Version 7)
Quarter: 2014Q2

REPORT INFORMATION
  Report Type: Spontaneous
  Country: US (occurrence: US)
  Receive Date: 20120203
  Receipt Date: 20140612
  Transmission Date: 20141212
  Serious: Yes (Life-Threatening, Hospitalization, Other)
  Sender: FDA-Public Use
  Company Number: US-US-EMD SERONO, INC.-7110190

PATIENT
  Age: 46 Year
  Sex: Female
  Weight: 55 kg

DRUGS (13)
  1. REBIF [Suspect]
     Indication: MULTIPLE SCLEROSIS
     Route: 058
     Dates: start: 20080130, end: 201110
  2. REBIF [Suspect]
     Route: 058
     Dates: start: 20120209
  3. REBIF [Suspect]
     Route: 058
     Dates: start: 201203, end: 20120604
  4. REBIF [Suspect]
     Route: 058
     Dates: start: 20130206, end: 201405
  5. EFFEXOR                            /01233801/ [Concomitant]
     Indication: PRODUCT USED FOR UNKNOWN INDICATION
  6. NEXIUM                             /01479302/ [Concomitant]
     Indication: GASTRIC DISORDER
  7. VESICARE                           /01735901/ [Concomitant]
     Indication: BLADDER DISORDER
  8. TOPAMAX [Concomitant]
     Indication: MIGRAINE
  9. NORVASC                            /00972401/ [Concomitant]
     Indication: HYPERTENSION
  10. CLONIDINE [Concomitant]
     Indication: HYPERTENSION
  11. RELPAX [Concomitant]
     Indication: MIGRAINE
  12. ADDERALL [Concomitant]
     Indication: PRODUCT USED FOR UNKNOWN INDICATION
  13. DANAZOL [Concomitant]
     Indication: IMMUNE THROMBOCYTOPENIC PURPURA
     Dates: end: 2013

REACTIONS (8)
  - Pneumonia [Recovering/Resolving]
  - Immune thrombocytopenic purpura [Recovering/Resolving]
  - Intestinal perforation [Recovering/Resolving]
  - Postoperative wound infection [Recovering/Resolving]
  - Post procedural fistula [Not Recovered/Not Resolved]
  - Hernia [Recovering/Resolving]
  - Weight decreased [Recovering/Resolving]
  - Drug hypersensitivity [Unknown]
